FAERS Safety Report 10007078 (Version 1)
Quarter: 2014Q1

REPORT INFORMATION
  Report Type: Spontaneous
  Country: US (occurrence: None)
  Receive Date: 20140312
  Receipt Date: 20140312
  Transmission Date: 20141002
  Serious: Yes (Life-Threatening, Hospitalization, Disabling)
  Sender: FDA-Public Use
  Company Number: None

PATIENT
  Age: 1 Year
  Sex: Male
  Weight: 6.8 kg

DRUGS (1)
  1. ATROVENT [Suspect]
     Indication: ASTHMA
     Dosage: 1 VIAL FOUR TIMES DAILY INHALATION
     Route: 055
     Dates: start: 20070930, end: 20090331

REACTIONS (1)
  - Skin discolouration [None]
